FAERS Safety Report 19490967 (Version 1)
Quarter: 2021Q3

REPORT INFORMATION
  Report Type: Report from Study
  Country: US (occurrence: US)
  Receive Date: 20210705
  Receipt Date: 20210705
  Transmission Date: 20211014
  Serious: Yes (Other)
  Sender: FDA-Public Use
  Company Number: US-BRISTOL-MYERS SQUIBB COMPANY-BMS-2021-063099

PATIENT
  Age: 61 Year
  Sex: Female
  Weight: 79.37 kg

DRUGS (1)
  1. APIXABAN [Suspect]
     Active Substance: APIXABAN
     Indication: CEREBROVASCULAR ACCIDENT PROPHYLAXIS
     Dosage: INADVERTENTLY TAKEN 2 X 5MG OF ELIQUIS AT ONE TIME INSTEAD OF 1 X 5MG FOR HER 1ST DOSE OF THE DAY
     Route: 048
     Dates: start: 2020

REACTIONS (2)
  - Myocardial infarction [Unknown]
  - Extra dose administered [Unknown]
